FAERS Safety Report 8028206-3 (Version None)
Quarter: 2012Q1

REPORT INFORMATION
  Report Type: 
  Country: None (occurrence: None)
  Receive Date: 20120106
  Receipt Date: 20110617
  Transmission Date: 20120608
  Serious: Yes (Hospitalization)
  Sender: FDA-Public Use
  Company Number: JP-ROCHE-728394

PATIENT
  Sex: Male
  Weight: 49 kg

DRUGS (36)
  1. XELODA [Suspect]
     Route: 048
     Dates: start: 20100816, end: 20100830
  2. AVASTIN [Suspect]
     Route: 041
     Dates: start: 20110228, end: 20110228
  3. OXALIPLATIN [Suspect]
     Route: 042
     Dates: start: 20100816, end: 20100816
  4. DEXAMETHASONE SODIUM PHOSPHATE [Suspect]
     Indication: PROPHYLAXIS
     Dosage: ROUTE: INTRAVENOUS (NOT OTHERWISE SPECIFIED)
     Route: 041
  5. XELODA [Suspect]
     Route: 048
     Dates: start: 20101018, end: 20101101
  6. XELODA [Suspect]
     Route: 048
     Dates: start: 20110117, end: 20110131
  7. AVASTIN [Suspect]
     Indication: COLON CANCER METASTATIC
     Route: 041
     Dates: start: 20100609, end: 20100609
  8. AVASTIN [Suspect]
     Route: 041
     Dates: start: 20110117, end: 20110117
  9. OMEPRAZOLE [Concomitant]
     Indication: PROPHYLAXIS
     Dosage: ROUTE: INTRAVENOUS (NOT OTHERWISE SPECIFIED)
     Route: 042
     Dates: start: 20100618, end: 20100625
  10. XELODA [Suspect]
     Route: 048
     Dates: start: 20101220, end: 20110103
  11. AVASTIN [Suspect]
     Route: 041
     Dates: start: 20100705, end: 20100705
  12. AVASTIN [Suspect]
     Route: 041
     Dates: start: 20100816, end: 20100816
  13. AVASTIN [Suspect]
     Route: 041
     Dates: start: 20101018, end: 20101018
  14. XELODA [Suspect]
     Route: 048
     Dates: start: 20100705, end: 20100719
  15. AVASTIN [Suspect]
     Route: 041
     Dates: start: 20100927, end: 20100927
  16. AVASTIN [Suspect]
     Route: 041
     Dates: start: 20101220, end: 20101220
  17. ALLOID G [Concomitant]
     Indication: PROPHYLAXIS
     Route: 048
  18. XELODA [Suspect]
     Route: 048
     Dates: start: 20100927, end: 20101011
  19. XELODA [Suspect]
     Route: 048
     Dates: start: 20110207, end: 20110221
  20. AVASTIN [Suspect]
     Route: 041
     Dates: start: 20101129, end: 20101129
  21. OXALIPLATIN [Suspect]
     Route: 042
     Dates: start: 20110207, end: 20110207
  22. OXALIPLATIN [Suspect]
     Route: 042
     Dates: start: 20110228, end: 20110228
  23. DEXAMETHASONE [Suspect]
     Indication: PROPHYLAXIS
     Route: 048
  24. XELODA [Suspect]
     Indication: COLON CANCER METASTATIC
     Dosage: DRUG NAME:XELODA 300(CAPECITABINE)
     Route: 048
     Dates: start: 20100609, end: 20100618
  25. AVASTIN [Suspect]
     Route: 041
     Dates: start: 20110207, end: 20110207
  26. OXALIPLATIN [Suspect]
     Indication: COLON CANCER METASTATIC
     Route: 041
     Dates: start: 20100609, end: 20100609
  27. OXALIPLATIN [Suspect]
     Route: 042
     Dates: start: 20100705, end: 20100705
  28. OXALIPLATIN [Suspect]
     Route: 042
     Dates: start: 20101129, end: 20101129
  29. OXALIPLATIN [Suspect]
     Route: 042
     Dates: start: 20101220, end: 20101220
  30. FAMOTIDINE [Concomitant]
     Dosage: DOSE FORM: PERORAL AGENT
     Route: 048
  31. FERROUS SULFATE TAB [Concomitant]
     Route: 048
  32. XELODA [Suspect]
     Route: 048
     Dates: start: 20101129, end: 20101213
  33. XELODA [Suspect]
     Route: 048
     Dates: start: 20110228, end: 20110314
  34. OXALIPLATIN [Suspect]
     Route: 042
     Dates: start: 20100927, end: 20100927
  35. OXALIPLATIN [Suspect]
     Route: 042
     Dates: start: 20101018, end: 20101018
  36. OXALIPLATIN [Suspect]
     Route: 042
     Dates: start: 20110117, end: 20110117

REACTIONS (3)
  - HYPERURICAEMIA [None]
  - GASTRIC ULCER HAEMORRHAGE [None]
  - GASTRIC ULCER [None]
